FAERS Safety Report 6348262-8 (Version None)
Quarter: 2009Q3

REPORT INFORMATION
  Report Type: 
  Country: None (occurrence: None)
  Receive Date: 20090908
  Receipt Date: 20090827
  Transmission Date: 20100115
  Serious: Yes (Hospitalization)
  Sender: FDA-Public Use
  Company Number: 2009US003040

PATIENT
  Sex: Male

DRUGS (2)
  1. PROGRAF [Suspect]
     Indication: RENAL TRANSPLANT
     Dosage: ORAL
     Route: 048
  2. PROGRAF [Suspect]
     Indication: RENAL TRANSPLANT

REACTIONS (1)
  - DRUG DISPENSING ERROR [None]
